FAERS Safety Report 8776979 (Version 3)
Quarter: 2012Q4

REPORT INFORMATION
  Report Type: 
  Country: JP (occurrence: JP)
  Receive Date: 20120911
  Receipt Date: 20121011
  Transmission Date: 20130627
  Serious: No
  Sender: FDA-Public Use
  Company Number: JP-GLAXOSMITHKLINE-B0826394A

PATIENT
  Age: 79 Year
  Sex: Male

DRUGS (9)
  1. SAMTIREL [Suspect]
     Indication: ANTIFUNGAL PROPHYLAXIS
     Dosage: 1500MG Per day
     Route: 048
     Dates: start: 20120611, end: 20120705
  2. PREDONINE [Concomitant]
     Route: 048
  3. LANSOPRAZOLE [Concomitant]
     Dosage: 30MG Per day
     Route: 048
     Dates: start: 20120126
  4. XYZAL [Concomitant]
     Dosage: 5MG Per day
     Route: 048
     Dates: start: 20120126
  5. MUCOSOLATE L [Concomitant]
     Dosage: 45MG Per day
     Route: 048
  6. REBAMIPIDE [Concomitant]
     Dosage: 100MG Three times per day
     Route: 048
  7. URIEF [Concomitant]
     Dosage: 2MG Twice per day
     Route: 048
  8. RHEUMATREX [Concomitant]
     Route: 048
  9. FOLIAMIN [Concomitant]
     Route: 048

REACTIONS (5)
  - Hepatic function abnormal [Recovered/Resolved]
  - Alanine aminotransferase increased [Unknown]
  - Blood lactate dehydrogenase increased [Unknown]
  - Aspartate aminotransferase increased [Unknown]
  - Blood bilirubin increased [Unknown]
